FAERS Safety Report 7793231-4 (Version None)
Quarter: 2011Q4

REPORT INFORMATION
  Report Type: 
  Country: None (occurrence: None)
  Receive Date: 20111003
  Receipt Date: 20110929
  Transmission Date: 20120403
  Serious: Yes (Hospitalization)
  Sender: FDA-Public Use
  Company Number: DE-BAYER-2011-088037

PATIENT
  Age: 62 Year
  Sex: Female
  Weight: 64.853 kg

DRUGS (1)
  1. GADAVIST [Suspect]
     Indication: NUCLEAR MAGNETIC RESONANCE IMAGING BRAIN
     Dosage: 5 ML, UNK
     Route: 042
     Dates: start: 20110919, end: 20110919

REACTIONS (6)
  - OROMANDIBULAR DYSTONIA [None]
  - PARAESTHESIA ORAL [None]
  - DIZZINESS [None]
  - TRISMUS [None]
  - NAUSEA [None]
  - RETCHING [None]
